FAERS Safety Report 5196204-3 (Version None)
Quarter: 2007Q1

REPORT INFORMATION
  Report Type: 
  Country: None (occurrence: None)
  Receive Date: 20070102
  Receipt Date: 20061221
  Transmission Date: 20070707
  Serious: Yes (Death)
  Sender: FDA-Public Use
  Company Number: CL-PFIZER INC-2006155841

PATIENT
  Age: 75 Year
  Sex: Female

DRUGS (4)
  1. PREGABALIN [Suspect]
     Route: 048
  2. IRON [Suspect]
     Indication: ANAEMIA
  3. CLONAZEPAM [Suspect]
  4. ANTIDEPRESSANTS [Suspect]

REACTIONS (3)
  - HEPATIC FAILURE [None]
  - HEPATITIS VIRAL [None]
  - HEPATOTOXICITY [None]
